FAERS Safety Report 5514257-7 (Version None)
Quarter: 2007Q4

REPORT INFORMATION
  Report Type: 
  Country: None (occurrence: None)
  Receive Date: 20071113
  Receipt Date: 20071107
  Transmission Date: 20080405
  Serious: Yes (Hospitalization)
  Sender: FDA-Public Use
  Company Number: US-JNJFOC-20070901948

PATIENT
  Sex: Female
  Weight: 97.98 kg

DRUGS (4)
  1. ORTHO EVRA [Suspect]
     Indication: DRUG USE FOR UNKNOWN INDICATION
     Route: 062
  2. GLUCOVANCE [Concomitant]
  3. LISINOPRIL [Concomitant]
  4. LIPITOR [Concomitant]

REACTIONS (3)
  - DEEP VEIN THROMBOSIS [None]
  - KLEBSIELLA BACTERAEMIA [None]
  - PULMONARY EMBOLISM [None]
